FAERS Safety Report 25861866 (Version 1)
Quarter: 2025Q3

REPORT INFORMATION
  Report Type: Spontaneous
  Country: US (occurrence: US)
  Receive Date: 20250930
  Receipt Date: 20250930
  Transmission Date: 20251020
  Serious: No
  Sender: ROCHE
  Company Number: US-ROCHE-10000396008

PATIENT
  Sex: Male

DRUGS (12)
  1. XOLAIR [Suspect]
     Active Substance: OMALIZUMAB
     Indication: Asthma
     Dosage: STRENGTH: 300 MG/2ML
     Route: 058
  2. Amlodipine B TAB 5mg [Concomitant]
  3. Breztri AERO AER 160-9-4 [Concomitant]
  4. Calcium tab 500 mg [Concomitant]
  5. Carvedilol tab 25 mg [Concomitant]
  6. ELIQUIS [Concomitant]
     Active Substance: APIXABAN
  7. Ezetimibe-SI tab 10-20mg [Concomitant]
  8. Irbesartan tab 75mg [Concomitant]
  9. MONTELUKAST SODIUM [Concomitant]
     Active Substance: MONTELUKAST SODIUM
  10. Nexium 24hr CPD 20mg [Concomitant]
  11. Tamsulosin H Cap 0.4mg [Concomitant]
  12. Testosterone POW [Concomitant]

REACTIONS (2)
  - Drug ineffective [Unknown]
  - No adverse event [Unknown]
